FAERS Safety Report 10855809 (Version 2)
Quarter: 2015Q2

REPORT INFORMATION
  Report Type: Spontaneous
  Country: US (occurrence: US)
  Receive Date: 20150223
  Receipt Date: 20150424
  Transmission Date: 20150821
  Serious: Yes (Hospitalization)
  Sender: FDA-Public Use
  Company Number: PHHY2015US017413

PATIENT
  Age: 64 Year
  Sex: Female

DRUGS (1)
  1. ACETYLSALICYLIC ACID+DIPYRIDAMOLE SANDOZ [Suspect]
     Active Substance: ASPIRIN\DIPYRIDAMOLE
     Indication: PRODUCT USED FOR UNKNOWN INDICATION
     Dosage: 1 DF, QD
     Route: 065

REACTIONS (10)
  - Cerebral infarction [Unknown]
  - Nausea [Unknown]
  - Incorrect dose administered [Unknown]
  - Cerebellar syndrome [Unknown]
  - Dizziness [Unknown]
  - Cerebrovascular accident [Unknown]
  - Vomiting [Unknown]
  - Nystagmus [Unknown]
  - Neurological examination abnormal [Unknown]
  - Drug dispensing error [None]
